FAERS Safety Report 4587983-4 (Version None)
Quarter: 2005Q1

REPORT INFORMATION
  Report Type: 
  Country: None (occurrence: None)
  Receive Date: 20050221
  Receipt Date: 20040824
  Transmission Date: 20050727
  Serious: Yes (Death, Hospitalization)
  Sender: FDA-Public Use
  Company Number: AU-ABBOTT-04P-008-0271585-02

PATIENT
  Sex: Male

DRUGS (21)
  1. RITONAVIR SOFT GELATIN CAPSULES (BLINDED) [Suspect]
     Indication: HIV INFECTION
     Route: 048
     Dates: start: 20040216, end: 20041219
  2. TENOFOVIR [Concomitant]
     Indication: HIV INFECTION
     Route: 048
     Dates: start: 20011122
  3. ABACAVIR [Concomitant]
     Indication: HIV INFECTION
     Route: 048
     Dates: start: 20010605
  4. LAMIVUDINE [Concomitant]
     Indication: HIV INFECTION
     Route: 048
     Dates: start: 20030305
  5. ENFUVIRTIDE [Concomitant]
     Indication: HIV INFECTION
     Route: 058
     Dates: start: 20040216, end: 20040705
  6. BACTRIM [Concomitant]
     Indication: INFECTION PROPHYLAXIS
     Route: 048
  7. VALPROATE SODIUM [Concomitant]
     Indication: NEUROPATHY PERIPHERAL
     Route: 048
  8. LOPERAMIDE HYDROCHLORIDE [Concomitant]
     Indication: DIARRHOEA
     Route: 048
  9. VALGANCICLOVIR [Concomitant]
     Indication: ANTIVIRAL PROPHYLAXIS
     Route: 048
  10. GABAPENTIN [Concomitant]
     Indication: NEUROPATHY PERIPHERAL
     Route: 048
     Dates: start: 20040209
  11. CLOPIDOGREL BISULFATE [Concomitant]
     Indication: THROMBOSIS PROPHYLAXIS
     Route: 048
     Dates: start: 20040309
  12. PYRICARBATE [Concomitant]
     Indication: CHEST PAIN
     Route: 060
     Dates: start: 20040306
  13. ATORVASTATIN CALCIUM [Concomitant]
     Indication: BLOOD CHOLESTEROL
     Route: 048
     Dates: start: 20040319
  14. CITALOPRAM HYDROBROMIDE [Concomitant]
     Indication: DEPRESSION
     Route: 048
     Dates: start: 20040413
  15. CITALOPRAM HYDROBROMIDE [Concomitant]
     Route: 048
     Dates: start: 20040413
  16. METOPROLOL [Concomitant]
     Indication: HYPERTENSION
     Route: 048
     Dates: start: 20040316
  17. MORPHINE SULFATE [Concomitant]
     Indication: NEUROPATHY PERIPHERAL
     Route: 048
  18. ASPIRIN [Concomitant]
     Indication: ANTICOAGULANT THERAPY
     Route: 048
     Dates: start: 20040630
  19. ACETAMINOPHEN W/ CODEINE [Concomitant]
     Indication: HEADACHE
     Route: 048
     Dates: start: 20040714
  20. FLUCONAZOLE [Concomitant]
     Indication: PROPHYLAXIS
     Route: 048
     Dates: start: 20040711
  21. TMC114 [Concomitant]
     Indication: HIV INFECTION
     Route: 048
     Dates: start: 20020216, end: 20041219

REACTIONS (1)
  - ENCEPHALOPATHY [None]
